FAERS Safety Report 5298670-1 (Version None)
Quarter: 2007Q2

REPORT INFORMATION
  Report Type: 
  Country: None (occurrence: None)
  Receive Date: 20070417
  Receipt Date: 20070404
  Transmission Date: 20071010
  Serious: Yes (Other)
  Sender: FDA-Public Use
  Company Number: PHMT2007CA00998

PATIENT
  Age: 71 Year
  Sex: Female

DRUGS (1)
  1. DIOVAN HCT [Suspect]

REACTIONS (2)
  - SWOLLEN TONGUE [None]
  - URTICARIA [None]
